FAERS Safety Report 9100696 (Version 1)
Quarter: 2013Q1

REPORT INFORMATION
  Report Type: Spontaneous
  Country: IN (occurrence: IN)
  Receive Date: 20130215
  Receipt Date: 20130215
  Transmission Date: 20140127
  Serious: Yes (Other)
  Sender: FDA-Public Use
  Company Number: IN-JNJFOC-20130201864

PATIENT
  Sex: Male

DRUGS (10)
  1. REMICADE [Suspect]
     Indication: SACROILIITIS
     Dosage: THIRD DOSE
     Route: 042
     Dates: start: 20130129
  2. REMICADE [Suspect]
     Indication: SACROILIITIS
     Dosage: SECOND DOSE
     Route: 042
     Dates: start: 20120824
  3. REMICADE [Suspect]
     Indication: SACROILIITIS
     Dosage: FIRST DOSE
     Route: 042
     Dates: start: 20120723
  4. REMICADE [Suspect]
     Indication: ANKYLOSING SPONDYLITIS
     Dosage: THIRD DOSE
     Route: 042
     Dates: start: 20130129
  5. REMICADE [Suspect]
     Indication: ANKYLOSING SPONDYLITIS
     Dosage: FIRST DOSE
     Route: 042
     Dates: start: 20120723
  6. REMICADE [Suspect]
     Indication: ANKYLOSING SPONDYLITIS
     Dosage: SECOND DOSE
     Route: 042
     Dates: start: 20120824
  7. SAAZ DS [Concomitant]
     Dosage: 1-1
     Route: 048
  8. INDOCID [Concomitant]
     Dosage: 25, 1-1
     Route: 065
  9. FOL [Concomitant]
     Dosage: 5, 1-0
     Route: 048
  10. ALL OTHER THERAPEUTIC AGENTS [Concomitant]
     Dosage: 5, 1-0
     Route: 048

REACTIONS (4)
  - Arthritis [Recovered/Resolved]
  - Synovitis [Recovered/Resolved]
  - Joint effusion [Unknown]
  - Drug ineffective [Recovered/Resolved]
